FAERS Safety Report 19202323 (Version 1)
Quarter: 2021Q2

REPORT INFORMATION
  Report Type: Spontaneous
  Country: NL (occurrence: NL)
  Receive Date: 20210430
  Receipt Date: 20210430
  Transmission Date: 20210717
  Serious: Yes (Other)
  Sender: FDA-Public Use
  Company Number: NL-TEVA-2021-NL-1905896

PATIENT
  Sex: Female
  Weight: 70 kg

DRUGS (1)
  1. CABERGOLINE TABLET 0,5MG / BRAND NAME NOT SPECIFIED [Suspect]
     Active Substance: CABERGOLINE
     Indication: PROLACTIN-PRODUCING PITUITARY TUMOUR
     Dosage: 1 DF 1X PER WEEK 1 ITEM; THERAPY START DATE; THERAPY END DATE : ASKED BUT UNKNOWN

REACTIONS (2)
  - Abortion spontaneous [Unknown]
  - Maternal exposure during pregnancy [Unknown]
